FAERS Safety Report 18585692 (Version 1)
Quarter: 2020Q4

REPORT INFORMATION
  Report Type: Spontaneous
  Country: US (occurrence: US)
  Receive Date: 20201205
  Receipt Date: 20201205
  Transmission Date: 20210114
  Serious: Yes (Hospitalization)
  Sender: FDA-Public Use
  Company Number: None

PATIENT
  Age: 85 Year
  Sex: Female
  Weight: 82.3 kg

DRUGS (2)
  1. ANCEF [Suspect]
     Active Substance: CEFAZOLIN SODIUM
     Indication: MEDICAL DEVICE IMPLANTATION
     Dates: start: 20201204, end: 20201204
  2. CEFAZOLIN [Concomitant]
     Active Substance: CEFAZOLIN
     Dates: start: 20201204, end: 20201204

REACTIONS (5)
  - Mental status changes [None]
  - Hypotension [None]
  - Oral pruritus [None]
  - Urticaria [None]
  - Pruritus [None]

NARRATIVE: CASE EVENT DATE: 20201204
